FAERS Safety Report 4368731-X (Version None)
Quarter: 2004Q2

REPORT INFORMATION
  Report Type: 
  Country: None (occurrence: None)
  Receive Date: 20040528
  Receipt Date: 20040518
  Transmission Date: 20050107
  Serious: Yes (Other)
  Sender: FDA-Public Use
  Company Number: 2004033763

PATIENT
  Age: 62 Year
  Sex: Male

DRUGS (1)
  1. SINEQUAN [Suspect]
     Indication: ILL-DEFINED DISORDER
     Dosage: 150 MG, (1 IN 1 D), ORAL
     Route: 048

REACTIONS (4)
  - CHRONIC OBSTRUCTIVE AIRWAYS DISEASE [None]
  - EXOSTOSIS [None]
  - SMOKER [None]
  - SUICIDAL IDEATION [None]
